FAERS Safety Report 6264784-2 (Version None)
Quarter: 2009Q3

REPORT INFORMATION
  Report Type: 
  Country: None (occurrence: None)
  Receive Date: 20090710
  Receipt Date: 20090708
  Transmission Date: 20100115
  Serious: Yes (Life-Threatening, Hospitalization)
  Sender: FDA-Public Use
  Company Number: US-BRISTOL-MYERS SQUIBB COMPANY-14688154

PATIENT
  Age: 74 Year
  Sex: Male
  Weight: 91 kg

DRUGS (4)
  1. CISPLATIN [Suspect]
     Indication: OESOPHAGEAL ADENOCARCINOMA
     Dosage: INITIAL DOSE:12MAY2009;20MG/M2 ONCE A WEEK
     Dates: start: 20090616, end: 20090616
  2. ERBITUX [Suspect]
     Indication: OESOPHAGEAL ADENOCARCINOMA
     Dosage: INITIAL DOSE:12MAY2009;250MG/M2 ONCE A WEEK
     Dates: start: 20090616, end: 20090616
  3. TAXOL [Suspect]
     Indication: OESOPHAGEAL ADENOCARCINOMA
     Dosage: INITIAL DOSE:12MAY2009;40MG/M2 ONCE A WEEK
     Dates: start: 20090616, end: 20090616
  4. RADIATION THERAPY [Suspect]
     Indication: OESOPHAGEAL ADENOCARCINOMA
     Dosage: 1DF=48.5CGY,EXT BEAM,3D,NO.OF FRACTIONS:25;NO.OF ELASPED DAYS:42;180CGY/FX FOR 6WKS;
     Dates: start: 20090512, end: 20090623

REACTIONS (7)
  - DEHYDRATION [None]
  - DIARRHOEA [None]
  - ENTEROCOLITIS [None]
  - HYPONATRAEMIA [None]
  - HYPOTENSION [None]
  - LEUKOPENIA [None]
  - NEUTROPENIA [None]
